FAERS Safety Report 12548874 (Version 1)
Quarter: 2016Q3

REPORT INFORMATION
  Report Type: Spontaneous
  Country: BE (occurrence: BE)
  Receive Date: 20160712
  Receipt Date: 20160712
  Transmission Date: 20161109
  Serious: Yes (Hospitalization)
  Sender: FDA-Public Use
  Company Number: BE-AUROBINDO-AUR-APL-2016-08773

PATIENT
  Age: 24 Year
  Sex: Male

DRUGS (1)
  1. IBUPROFEN. [Suspect]
     Active Substance: IBUPROFEN
     Indication: PRODUCT USED FOR UNKNOWN INDICATION
     Route: 065

REACTIONS (10)
  - Influenza like illness [Unknown]
  - Dyspepsia [Unknown]
  - Odynophagia [Unknown]
  - Night sweats [Unknown]
  - Ulcer [Unknown]
  - Chest pain [Unknown]
  - Condition aggravated [Unknown]
  - Vomiting [Unknown]
  - Pyrexia [Unknown]
  - Herpes oesophagitis [Unknown]
